FAERS Safety Report 8825851 (Version 6)
Quarter: 2013Q4

REPORT INFORMATION
  Report Type: Spontaneous
  Country: US (occurrence: US)
  Receive Date: 20121004
  Receipt Date: 20131125
  Transmission Date: 20140711
  Serious: Yes (Hospitalization, Disabling, Other)
  Sender: FDA-Public Use
  Company Number: US-009507513-1205USA00979

PATIENT
  Sex: Female
  Weight: 68.27 kg

DRUGS (3)
  1. FOSAMAX [Suspect]
     Indication: OSTEOPENIA
     Dosage: 70 MG, QW
     Route: 048
     Dates: start: 199710, end: 201002
  2. FOSAMAX [Suspect]
     Dosage: UNK, QD
     Route: 048
     Dates: start: 199710, end: 201001
  3. PROVERA [Concomitant]
     Dosage: UNK
     Dates: start: 1989, end: 1999

REACTIONS (25)
  - Intramedullary rod insertion [Unknown]
  - Hip fracture [Unknown]
  - Hip surgery [Unknown]
  - Intraductal proliferative breast lesion [Unknown]
  - Breast lump removal [Unknown]
  - Mastectomy [Unknown]
  - Breast mass [Unknown]
  - Bone density decreased [Unknown]
  - Femur fracture [Unknown]
  - Skin exfoliation [Unknown]
  - Hypothyroidism [Unknown]
  - Hepatic calcification [Unknown]
  - Splenic calcification [Unknown]
  - Breast calcifications [Unknown]
  - Splenic granuloma [Unknown]
  - Radiotherapy [Unknown]
  - Rib fracture [Unknown]
  - Hypercalciuria [Unknown]
  - Intervertebral disc degeneration [Unknown]
  - Osteoarthritis [Unknown]
  - Spondylolisthesis [Unknown]
  - Bone lesion [Unknown]
  - Arthralgia [Not Recovered/Not Resolved]
  - Back pain [Not Recovered/Not Resolved]
  - Alopecia [Unknown]
